FAERS Safety Report 25981667 (Version 2)
Quarter: 2025Q4

REPORT INFORMATION
  Report Type: Report from Study
  Country: US (occurrence: US)
  Receive Date: 20251031
  Receipt Date: 20251126
  Transmission Date: 20260118
  Serious: Yes (Other)
  Sender: ABBVIE
  Company Number: US-ABBVIE-6519167

PATIENT
  Age: 35 Year
  Sex: Female

DRUGS (3)
  1. SKYRIZI [Suspect]
     Active Substance: RISANKIZUMAB-RZAA
     Indication: Colitis ulcerative
     Route: 058
     Dates: start: 20250201
  2. SKYRIZI [Suspect]
     Active Substance: RISANKIZUMAB-RZAA
     Route: 058
     Dates: start: 20250410
  3. SKYRIZI [Suspect]
     Active Substance: RISANKIZUMAB-RZAA
     Route: 058
     Dates: start: 202508

REACTIONS (16)
  - Intestinal obstruction [Unknown]
  - Pouchitis [Unknown]
  - Haematochezia [Recovering/Resolving]
  - Blood test abnormal [Unknown]
  - Fatigue [Unknown]
  - Injection site reaction [Unknown]
  - Injection site swelling [Unknown]
  - Immunodeficiency [Unknown]
  - Abdominal pain upper [Recovering/Resolving]
  - Gastric infection [Unknown]
  - Stress [Recovering/Resolving]
  - Anxiety [Recovering/Resolving]
  - Frequent bowel movements [Recovering/Resolving]
  - Pain [Recovering/Resolving]
  - Intestinal anastomosis [Unknown]
  - Mucous stools [Unknown]

NARRATIVE: CASE EVENT DATE: 20250101
